FAERS Safety Report 4551214-1 (Version None)
Quarter: 2005Q1

REPORT INFORMATION
  Report Type: 
  Country: None (occurrence: None)
  Receive Date: 20050106
  Receipt Date: 20041229
  Transmission Date: 20050727
  Serious: Yes (Hospitalization)
  Sender: FDA-Public Use
  Company Number: 2004EU002275

PATIENT
  Age: 53 Year
  Sex: Male

DRUGS (6)
  1. PROGRAF [Suspect]
     Indication: LIVER TRANSPLANT
     Dosage: ORAL
     Route: 048
     Dates: start: 20010606, end: 20040708
  2. ZEFFIX(LAMIVUDINE) [Concomitant]
  3. ZYLORIC ^GLAXO WELLCOME^ [Concomitant]
  4. DAONIL [Concomitant]
  5. DELURSAN (URSODEOXYCHOLIC ACID) [Concomitant]
  6. AMLODIPINE BESYLATE [Concomitant]

REACTIONS (4)
  - AGRANULOCYTOSIS [None]
  - ANAEMIA [None]
  - BONE MARROW MYELOGRAM ABNORMAL [None]
  - LEUKOPENIA [None]
